FAERS Safety Report 9014106 (Version 2)
Quarter: 2013Q4

REPORT INFORMATION
  Report Type: Spontaneous
  Country: GB (occurrence: GB)
  Receive Date: 20130115
  Receipt Date: 20131008
  Transmission Date: 20140711
  Serious: Yes (Life-Threatening)
  Sender: FDA-Public Use
  Company Number: GB-WATSON-2013-00231

PATIENT
  Age: 67 Year
  Sex: Female
  Weight: 73 kg

DRUGS (7)
  1. ROPINIROLE (UNKNOWN) [Suspect]
     Indication: PARKINSON^S DISEASE
     Dosage: 3 DF, DAILY
     Route: 048
     Dates: start: 20070629, end: 200905
  2. REQUIP XL [Suspect]
     Indication: PARKINSON^S DISEASE
     Dosage: 20 MG DAILY; GRADUALLY INCREASED TO 20MG DAILY. DOSE REDUCED TO 16 MG 9 MONTHS LATER
     Route: 048
     Dates: start: 20120208
  3. REQUIP XL [Suspect]
     Dosage: 12 MG, DAILY
     Route: 048
     Dates: start: 200905
  4. MADOPAR [Concomitant]
     Indication: PRODUCT USED FOR UNKNOWN INDICATION
     Dosage: 125; INCREASED FOR 4 TO 5 DAY END SEPTEMBER
     Route: 065
  5. MADOPAR [Concomitant]
     Dosage: MADOPAR 125 INCREASED FROM 4 TO 5 A DAY END SEPTEMBER
     Route: 065
  6. RASAGILINE [Concomitant]
     Indication: PRODUCT USED FOR UNKNOWN INDICATION
     Dosage: 1 MG, DAILY
     Route: 065
     Dates: start: 20120912
  7. OXYBUTYNIN [Concomitant]
     Indication: PRODUCT USED FOR UNKNOWN INDICATION
     Dosage: UNK
     Route: 065
     Dates: start: 201212

REACTIONS (2)
  - Somnambulism [Recovered/Resolved]
  - Disturbance in attention [Recovered/Resolved]
